FAERS Safety Report 7412525-5 (Version None)
Quarter: 2011Q2

REPORT INFORMATION
  Report Type: 
  Country: None (occurrence: None)
  Receive Date: 20110413
  Receipt Date: 20110404
  Transmission Date: 20111010
  Serious: Yes (Hospitalization, Disabling, Other)
  Sender: FDA-Public Use
  Company Number: US-ASTRAZENECA-2010SE49149

PATIENT
  Age: 70 Year
  Sex: Male
  Weight: 74.8 kg

DRUGS (32)
  1. TOPROL-XL [Suspect]
     Indication: HYPERTENSION
     Route: 048
  2. ARICEPT [Interacting]
     Indication: DEMENTIA
     Route: 048
     Dates: start: 20100414
  3. ARICEPT [Interacting]
     Route: 048
     Dates: start: 20100512, end: 20100601
  4. ARICEPT [Interacting]
     Route: 048
     Dates: start: 20100601
  5. DILTIAZEM [Interacting]
     Route: 048
     Dates: start: 20050101
  6. ADVAIR DISKUS 100/50 [Concomitant]
  7. XANAX [Interacting]
     Indication: NERVOUSNESS
     Route: 048
     Dates: start: 19880101
  8. XANAX [Interacting]
     Route: 048
  9. TAZTIA XT [Interacting]
     Indication: BLOOD PRESSURE ABNORMAL
     Route: 048
     Dates: start: 20050101
  10. NAMENDA [Interacting]
     Route: 048
     Dates: start: 20100918
  11. DILTIAZEM [Interacting]
     Indication: HYPERTENSION
     Route: 048
  12. METOPROLOL TARTRATE [Concomitant]
     Indication: BLOOD PRESSURE ABNORMAL
     Route: 048
     Dates: start: 20050101
  13. UROXATRAL [Concomitant]
     Indication: PROSTATIC DISORDER
     Route: 048
     Dates: start: 20091101
  14. ARICEPT [Interacting]
     Route: 048
     Dates: start: 20100501
  15. NORVASC [Interacting]
     Indication: HYPERTENSION
     Route: 048
  16. ALPRAZOLAM [Interacting]
     Indication: NERVOUSNESS
     Route: 048
     Dates: start: 19880101
  17. POTASSIUM CHLORIDE [Interacting]
     Indication: MINERAL SUPPLEMENTATION
     Route: 048
     Dates: start: 20050101
  18. ARICEPT [Interacting]
     Route: 048
     Dates: start: 20100501
  19. MULTI-VITAMINS [Concomitant]
  20. QUINAPRIL HCL [Concomitant]
     Indication: BLOOD PRESSURE ABNORMAL
     Route: 048
     Dates: start: 20030101
  21. AVODART [Concomitant]
     Indication: PROSTATIC DISORDER
     Route: 048
     Dates: start: 20070101
  22. ZETIA [Concomitant]
     Indication: CARDIAC DISORDER
     Route: 048
     Dates: start: 20060101
  23. UROXATRAL [Concomitant]
     Indication: URINE FLOW DECREASED
     Route: 048
     Dates: start: 20091101
  24. ARICEPT [Interacting]
     Indication: AMNESIA
     Route: 048
     Dates: start: 20100414
  25. AMBIEN [Concomitant]
  26. FUROSEMIDE [Concomitant]
  27. ARICEPT [Interacting]
     Route: 048
     Dates: start: 20100512, end: 20100601
  28. DIAMOX [Interacting]
     Indication: HYPERTENSION
     Route: 048
  29. ALBUTEROL [Concomitant]
  30. ARICEPT [Interacting]
     Route: 048
     Dates: start: 20100601
  31. NAMENDA [Interacting]
     Indication: DEMENTIA
     Route: 048
     Dates: start: 20100601
  32. VITAMIN D [Concomitant]
     Dates: start: 20100501

REACTIONS (32)
  - HYPOTONIA [None]
  - INSOMNIA [None]
  - DIARRHOEA [None]
  - ERYTHEMA [None]
  - MALAISE [None]
  - DYSPNOEA [None]
  - STRESS [None]
  - URINE FLOW DECREASED [None]
  - DIZZINESS [None]
  - ABASIA [None]
  - DYSSTASIA [None]
  - BACK PAIN [None]
  - SOMNOLENCE [None]
  - ASTHENIA [None]
  - NAUSEA [None]
  - GAIT DISTURBANCE [None]
  - BLADDER DISCOMFORT [None]
  - READING DISORDER [None]
  - NIGHTMARE [None]
  - DYSURIA [None]
  - COLD SWEAT [None]
  - BALANCE DISORDER [None]
  - HEADACHE [None]
  - OEDEMA PERIPHERAL [None]
  - ABDOMINAL DISCOMFORT [None]
  - RHINORRHOEA [None]
  - VISION BLURRED [None]
  - DRUG INTERACTION [None]
  - EYE IRRITATION [None]
  - PNEUMONIA BACTERIAL [None]
  - DEMENTIA [None]
  - VITAMIN D DECREASED [None]
